FAERS Safety Report 5404344-6 (Version None)
Quarter: 2007Q3

REPORT INFORMATION
  Report Type: 
  Country: None (occurrence: None)
  Receive Date: 20070711
  Receipt Date: 20070402
  Transmission Date: 20080115
  Serious: Yes (Other)
  Sender: FDA-Public Use
  Company Number: 248817

PATIENT
  Age: 55 Year
  Sex: Female
  Weight: 77.6 kg

DRUGS (14)
  1. ACTIVELLA [Suspect]
     Indication: MENOPAUSAL SYMPTOMS
     Dates: start: 19900101, end: 19980101
  2. ACTIVELLA [Suspect]
     Indication: MENOPAUSAL SYMPTOMS
     Dates: start: 20020102, end: 20020220
  3. PREMPRO [Suspect]
     Indication: MENOPAUSAL SYMPTOMS
     Dates: start: 19981001, end: 20020101
  4. PREMPRO [Suspect]
     Indication: MENOPAUSAL SYMPTOMS
     Dates: start: 20020220, end: 20020801
  5. PROVERA [Suspect]
     Indication: MENOPAUSAL SYMPTOMS
     Dosage: 10 MG
     Dates: start: 19890101, end: 19900101
  6. PROVERA [Suspect]
     Indication: MENOPAUSAL SYMPTOMS
     Dosage: 10 MG
     Dates: start: 19970101, end: 19980101
  7. PREMARIN [Suspect]
     Indication: MENOPAUSAL SYMPTOMS
     Dosage: 0.625 MG
     Dates: start: 19890101, end: 19900101
  8. PREMARIN [Suspect]
     Indication: MENOPAUSAL SYMPTOMS
     Dosage: 0.625 MG
     Dates: start: 19970101, end: 19980101
  9. ESTRADIOL [Suspect]
     Indication: MENOPAUSAL SYMPTOMS
     Dates: start: 19900101, end: 19980101
  10. ESTRADIOL [Suspect]
     Indication: MENOPAUSAL SYMPTOMS
     Dates: start: 20020101, end: 20030321
  11. PROMETRIUM [Concomitant]
  12. CLARITIN-D [Concomitant]
  13. COZAAR [Concomitant]
  14. NASACORT [Concomitant]

REACTIONS (1)
  - BREAST CANCER [None]
